FAERS Safety Report 23261049 (Version 1)
Quarter: 2023Q4

REPORT INFORMATION
  Report Type: Spontaneous
  Country: US (occurrence: US)
  Receive Date: 20231205
  Receipt Date: 20231205
  Transmission Date: 20240110
  Serious: Yes (Other)
  Sender: FDA-Public Use
  Company Number: US-SANOFI-01862447

PATIENT
  Age: 9 Year
  Sex: Female

DRUGS (1)
  1. DUPIXENT [Suspect]
     Active Substance: DUPILUMAB
     Dosage: UNK
     Route: 065
     Dates: start: 20231129

REACTIONS (5)
  - Acute febrile neutrophilic dermatosis [Unknown]
  - Pyrexia [Unknown]
  - Arthralgia [Unknown]
  - Pustule [Unknown]
  - Erythema [Unknown]

NARRATIVE: CASE EVENT DATE: 20230101
